FAERS Safety Report 5428425-6 (Version None)
Quarter: 2007Q3

REPORT INFORMATION
  Report Type: 
  Country: None (occurrence: None)
  Receive Date: 20070731
  Receipt Date: 20070501
  Transmission Date: 20080115
  Serious: No
  Sender: FDA-Public Use
  Company Number: US200705000467

PATIENT
  Age: 68 Year
  Sex: Female
  Weight: 74.8 kg

DRUGS (8)
  1. BYETTA [Suspect]
     Indication: TYPE 2 DIABETES MELLITUS
     Dosage: 5 UG, 2/D, SUBCUTANEOUS, 10 UG, 2/D, SUBCUTANEOUS
     Route: 058
     Dates: start: 20070101, end: 20070201
  2. BYETTA [Suspect]
     Indication: TYPE 2 DIABETES MELLITUS
     Dosage: 5 UG, 2/D, SUBCUTANEOUS, 10 UG, 2/D, SUBCUTANEOUS
     Route: 058
     Dates: start: 20070201
  3. EXENATIDE (EXENATIDE) [Concomitant]
  4. LANTUS [Concomitant]
  5. GLIMEPIRIDE [Concomitant]
  6. AVANDIA [Concomitant]
  7. DIOVAN (HYDROCHLOROTHIAZIDE, VALSARTAN) [Concomitant]
  8. VYTORIN [Concomitant]

REACTIONS (2)
  - REGURGITATION [None]
  - VOMITING [None]
